FAERS Safety Report 8804605 (Version 1)
Quarter: 2012Q4

REPORT INFORMATION
  Report Type: 
  Country: JP (occurrence: JP)
  Receive Date: 20120924
  Receipt Date: 20120924
  Transmission Date: 20130627
  Serious: Yes (Other)
  Sender: FDA-Public Use
  Company Number: JP-009507513-1209JPN007543

PATIENT
  Sex: Male

DRUGS (3)
  1. CLARITIN [Suspect]
     Indication: PRURITUS
     Route: 048
  2. CLARITIN [Suspect]
     Indication: ECZEMA
  3. [COMPOSITION UNSPECIFIED] [Concomitant]

REACTIONS (5)
  - Gamma-glutamyltransferase increased [Recovered/Resolved]
  - Aspartate aminotransferase increased [Recovered/Resolved]
  - Alanine aminotransferase increased [Recovered/Resolved]
  - Pruritus [Recovering/Resolving]
  - Eczema [Recovering/Resolving]
